FAERS Safety Report 15885943 (Version 1)
Quarter: 2019Q1

REPORT INFORMATION
  Report Type: Spontaneous
  Country: BE (occurrence: BE)
  Receive Date: 20190129
  Receipt Date: 20190129
  Transmission Date: 20190417
  Serious: Yes (Hospitalization)
  Sender: FDA-Public Use
  Company Number: BE-MYLANLABS-2019M1008044

PATIENT
  Sex: Male

DRUGS (7)
  1. LIDOCAINE. [Suspect]
     Active Substance: LIDOCAINE
     Indication: EPIDURAL ANAESTHESIA
     Dosage: MOTHER RECEIVED LIDOCAINE AFTER LOCAL INFILTRATION OF THE SKIN
     Route: 064
  2. LIDOCAINE. [Suspect]
     Active Substance: LIDOCAINE
     Dosage: LOADING DOSE OF EPIDURAL ANAESTHESIA
     Route: 064
  3. SUFENTANIL [Suspect]
     Active Substance: SUFENTANIL
     Indication: ANAESTHESIA
     Dosage: BOLUS EVERY 20 MIN CONSISTING OF SUFENTANIL
     Route: 064
  4. LIDOCAINE. [Suspect]
     Active Substance: LIDOCAINE
     Dosage: DURING SECOND STAGE OF LABOUR FOR A PERINEAL NERVE BLOCK
     Route: 064
  5. SODIUM CHLORIDE. [Suspect]
     Active Substance: SODIUM CHLORIDE
     Indication: PRODUCT USED FOR UNKNOWN INDICATION
     Dosage: UPTO 50ML
     Route: 064
  6. EPINEPHRINE. [Suspect]
     Active Substance: EPINEPHRINE
     Indication: EPIDURAL ANAESTHESIA
     Dosage: EPINEPHRINE STRENGTH: 1/200,000; LOADING DOSE OF EPIDURAL ANAESTHESIA
     Route: 064
  7. ROPIVACAINE. [Suspect]
     Active Substance: ROPIVACAINE HYDROCHLORIDE
     Indication: ANAESTHESIA
     Dosage: BOLUS EVERY 20 MIN CONSISTING OF ROPIVACAINE
     Route: 064

REACTIONS (9)
  - Hypotension [Recovered/Resolved]
  - Muscle contractions involuntary [Recovered/Resolved]
  - Toxicity to various agents [Recovered/Resolved]
  - Foetal exposure during delivery [Recovered/Resolved]
  - Heart rate decreased [Recovered/Resolved]
  - Tonic convulsion [Recovered/Resolved]
  - Infantile apnoea [Recovered/Resolved]
  - Mydriasis [Recovered/Resolved]
  - Hypotonia neonatal [Recovered/Resolved]
